FAERS Safety Report 8523306-3 (Version None)
Quarter: 2012Q3

REPORT INFORMATION
  Report Type: 
  Country: None (occurrence: None)
  Receive Date: 20120720
  Receipt Date: 20120717
  Transmission Date: 20120928
  Serious: Yes (Other)
  Sender: FDA-Public Use
  Company Number: AU-US-EMD SERONO, INC.-7146274

PATIENT
  Sex: Female

DRUGS (3)
  1. HUMALOG [Suspect]
     Indication: PRODUCT USED FOR UNKNOWN INDICATION
  2. REBIF [Suspect]
     Indication: PRODUCT USED FOR UNKNOWN INDICATION
     Dates: start: 20100517
  3. LEVEMIR [Suspect]
     Indication: PRODUCT USED FOR UNKNOWN INDICATION

REACTIONS (8)
  - LOWER RESPIRATORY TRACT INFECTION [None]
  - MALAISE [None]
  - WRONG DRUG ADMINISTERED [None]
  - DEVICE MISUSE [None]
  - HYPOGLYCAEMIA [None]
  - DRUG DOSE OMISSION [None]
  - BRONCHITIS [None]
  - ACCIDENTAL OVERDOSE [None]
